FAERS Safety Report 5265489-7 (Version None)
Quarter: 2007Q1

REPORT INFORMATION
  Report Type: 
  Country: None (occurrence: None)
  Receive Date: 20070314
  Receipt Date: 20060207
  Transmission Date: 20070707
  Serious: Yes (Death, Life-Threatening, Hospitalization)
  Sender: FDA-Public Use
  Company Number: ZW-BOEHRINGER INGELHEIM PHARMACEUTICALS, INC.-2005-UK-00397UK

PATIENT
  Sex: Male

DRUGS (6)
  1. NEVIRAPINE [Suspect]
     Indication: HIV INFECTION
     Dates: end: 20050304
  2. KALETRA [Suspect]
     Indication: HIV INFECTION
     Dates: end: 20050304
  3. DIDANOSINE [Suspect]
     Indication: HIV INFECTION
     Dates: end: 20050304
  4. CIPROFLOXACIN [Concomitant]
  5. POTASSIUM CHLORIDE [Concomitant]
  6. VITAMIN K [Concomitant]

REACTIONS (1)
  - HEPATIC FAILURE [None]
